FAERS Safety Report 7394304-0 (Version None)
Quarter: 2011Q2

REPORT INFORMATION
  Report Type: 
  Country: None (occurrence: None)
  Receive Date: 20110405
  Receipt Date: 20110325
  Transmission Date: 20111010
  Serious: Yes (Hospitalization)
  Sender: FDA-Public Use
  Company Number: US-JNJFOC-20110400692

PATIENT
  Age: 21 Year
  Sex: Male

DRUGS (6)
  1. RITONAVIR [Suspect]
     Indication: HIV INFECTION
     Route: 048
  2. DARUNAVIR [Suspect]
     Indication: HIV INFECTION
     Route: 048
  3. EMTRICITABINE/TENOFOVIR DISOPROXIL FUMARATE [Suspect]
     Indication: HIV INFECTION
     Dosage: 200-300 MG DAILY
     Route: 048
  4. VALACYCLOVIR [Concomitant]
  5. ALBUTEROL SULPHATE [Concomitant]
  6. AZITHROMYCIN [Concomitant]

REACTIONS (1)
  - PERIRECTAL ABSCESS [None]
